FAERS Safety Report 8359597-1 (Version None)
Quarter: 2012Q2

REPORT INFORMATION
  Report Type: 
  Country: None (occurrence: None)
  Receive Date: 20120515
  Receipt Date: 20120504
  Transmission Date: 20120825
  Serious: Yes (Hospitalization)
  Sender: FDA-Public Use
  Company Number: US-JNJFOC-20120405126

PATIENT
  Sex: Female
  Weight: 52.2 kg

DRUGS (9)
  1. CHOLECALCIFEROL [Concomitant]
  2. IRON [Concomitant]
  3. HUMIRA [Concomitant]
     Indication: CROHN'S DISEASE
     Dates: start: 20070416, end: 20100616
  4. HUMIRA [Concomitant]
     Dates: start: 20120107, end: 20120301
  5. REMICADE [Suspect]
     Indication: CROHN'S DISEASE
     Route: 042
     Dates: start: 20060703
  6. AZITHROMYCIN [Concomitant]
  7. TYLENOL (CAPLET) [Concomitant]
  8. ANTIBIOTICS FOR IBD [Concomitant]
     Indication: INFLAMMATORY BOWEL DISEASE
  9. PRILOSEC [Concomitant]

REACTIONS (2)
  - CROHN'S DISEASE [None]
  - INTESTINAL STENOSIS [None]
